FAERS Safety Report 8978968 (Version 1)
Quarter: 2012Q4

REPORT INFORMATION
  Report Type: 
  Country: BE (occurrence: BE)
  Receive Date: 20121221
  Receipt Date: 20121221
  Transmission Date: 20130627
  Serious: Yes (Hospitalization)
  Sender: FDA-Public Use
  Company Number: BE-B.I. PHARMACEUTICALS,INC./RIDGEFIELD-2012-BL-00633BL

PATIENT
  Age: 80 Year
  Sex: Male

DRUGS (6)
  1. PRADAXA [Suspect]
     Indication: ATRIAL FIBRILLATION
     Dosage: 300 mg
     Dates: start: 20120410, end: 20121203
  2. ANTIDIABETIC [Concomitant]
     Indication: DIABETES MELLITUS
  3. SARTAN [Concomitant]
  4. CALCIC INHIBITOR [Concomitant]
     Indication: CALCIUM METABOLISM DISORDER
  5. STATINE [Concomitant]
  6. BETA-BLOQUANT [Concomitant]

REACTIONS (1)
  - Cerebrovascular accident [Not Recovered/Not Resolved]
